FAERS Safety Report 4973939-6 (Version None)
Quarter: 2006Q2

REPORT INFORMATION
  Report Type: 
  Country: None (occurrence: None)
  Receive Date: 20060410
  Receipt Date: 20060403
  Transmission Date: 20061013
  Serious: Yes (Other)
  Sender: FDA-Public Use
  Company Number: 2006046281

PATIENT
  Sex: Male

DRUGS (6)
  1. LIPITOR [Suspect]
     Indication: ILL-DEFINED DISORDER
     Dosage: 10 MG (10 MG, 1 IN 1 D) ORAL
     Route: 048
  2. FUROSEMIDE [Concomitant]
  3. PLENDIL [Concomitant]
  4. AVODART [Concomitant]
  5. PHOSLO [Concomitant]
  6. ALLOPURINOL [Concomitant]

REACTIONS (3)
  - ARTHRALGIA [None]
  - DIALYSIS [None]
  - RENAL FAILURE [None]
